FAERS Safety Report 8437633-1 (Version None)
Quarter: 2012Q2

REPORT INFORMATION
  Report Type: 
  Country: None (occurrence: None)
  Receive Date: 20120614
  Receipt Date: 20120501
  Transmission Date: 20120825
  Serious: No
  Sender: FDA-Public Use
  Company Number: US-AMGEN-USASP2012027599

PATIENT
  Age: 65 Year
  Sex: Female

DRUGS (6)
  1. VITAMIN D [Concomitant]
     Dosage: UNK IU, UNK
  2. CLONAZEPAM [Concomitant]
  3. BUTALBITAL [Concomitant]
  4. PROLIA [Suspect]
     Indication: OSTEOPOROSIS POSTMENOPAUSAL
     Dosage: 60 MG, Q6MO
     Dates: start: 20120430
  5. LOSARTAN POTASSIUM [Concomitant]
     Dosage: UNK MG, UNK
  6. SINGULAIR [Concomitant]

REACTIONS (1)
  - INJECTION SITE PAIN [None]
